FAERS Safety Report 4642489-9 (Version None)
Quarter: 2005Q2

REPORT INFORMATION
  Report Type: 
  Country: None (occurrence: None)
  Receive Date: 20050422
  Receipt Date: 20050110
  Transmission Date: 20051028
  Serious: Yes (Death, Life-Threatening, Hospitalization)
  Sender: FDA-Public Use
  Company Number: US-MERCK-0501USA00956

PATIENT
  Age: 83 Year
  Sex: Male
  Weight: 77 kg

DRUGS (27)
  1. VIOXX [Suspect]
     Indication: ARTHRITIS
     Route: 048
     Dates: start: 20010530, end: 20040827
  2. MONOPRIL [Concomitant]
     Route: 048
     Dates: start: 20000101, end: 20040801
  3. TOPROL-XL [Concomitant]
     Route: 048
     Dates: start: 19971201, end: 20040801
  4. NASONEX [Concomitant]
     Route: 055
  5. ZITHROMAX [Concomitant]
     Route: 065
  6. ALLEGRA [Concomitant]
     Route: 048
  7. IMDUR [Concomitant]
     Route: 065
  8. IMDUR [Concomitant]
     Route: 065
  9. ENULOSE [Concomitant]
     Route: 065
  10. NITROQUICK [Concomitant]
     Route: 065
  11. ACULAR [Concomitant]
     Route: 065
  12. LOTEMAX [Concomitant]
     Route: 065
  13. OCUFLOX [Concomitant]
     Route: 065
  14. CEFZIL [Concomitant]
     Route: 065
  15. PROMETHAZINE [Concomitant]
     Route: 065
  16. ALREX [Concomitant]
     Route: 065
  17. ALOCRIL [Concomitant]
     Route: 065
  18. BIAXIN [Concomitant]
     Route: 065
  19. ZYRTEC [Concomitant]
     Route: 065
  20. ZOCOR [Concomitant]
     Route: 048
     Dates: start: 20030801, end: 20040801
  21. DIAZEPAM [Concomitant]
     Route: 065
     Dates: start: 20030801, end: 20030901
  22. RHINOCORT [Concomitant]
     Route: 065
  23. PATANOL [Concomitant]
     Route: 065
  24. FLOMAX [Concomitant]
     Route: 065
  25. LEVAQUIN [Concomitant]
     Route: 065
  26. ASPIRIN [Concomitant]
     Route: 048
     Dates: start: 19971201, end: 20040801
  27. ZESTRIL [Concomitant]
     Route: 065
     Dates: start: 20000101, end: 20040801

REACTIONS (35)
  - ACUTE RESPIRATORY FAILURE [None]
  - ANGINA PECTORIS [None]
  - ANXIETY DISORDER [None]
  - AORTIC STENOSIS [None]
  - AORTIC VALVE INCOMPETENCE [None]
  - ATRIOVENTRICULAR BLOCK FIRST DEGREE [None]
  - BLOOD CHOLESTEROL INCREASED [None]
  - BLOOD TRIGLYCERIDES INCREASED [None]
  - CARDIAC DISORDER [None]
  - CARDIAC FAILURE CONGESTIVE [None]
  - CARDIO-RESPIRATORY ARREST [None]
  - CATHETER SEPSIS [None]
  - CEREBRAL HAEMORRHAGE [None]
  - CEREBROVASCULAR ACCIDENT [None]
  - CHEST PAIN [None]
  - COMA [None]
  - CONVULSION [None]
  - CORONARY ARTERY DISEASE [None]
  - EYE PAIN [None]
  - HAEMOGLOBIN DECREASED [None]
  - HAEMOPHILUS INFECTION [None]
  - HEADACHE [None]
  - KLEBSIELLA SEPSIS [None]
  - MITRAL VALVE CALCIFICATION [None]
  - ORAL CANDIDIASIS [None]
  - PNEUMONIA ASPIRATION [None]
  - RESPIRATORY FAILURE [None]
  - SCAR [None]
  - SEPSIS [None]
  - SINUS BRADYCARDIA [None]
  - SPUTUM CULTURE POSITIVE [None]
  - STAPHYLOCOCCAL SEPSIS [None]
  - VENTRICULAR EXTRASYSTOLES [None]
  - VENTRICULAR HYPERTROPHY [None]
  - WHITE BLOOD CELL COUNT INCREASED [None]
